FAERS Safety Report 7501661-0 (Version None)
Quarter: 2011Q2

REPORT INFORMATION
  Report Type: 
  Country: None (occurrence: None)
  Receive Date: 20110524
  Receipt Date: 20110512
  Transmission Date: 20111010
  Serious: Yes (Other)
  Sender: FDA-Public Use
  Company Number: IT-ELI_LILLY_AND_COMPANY-IT201105003436

PATIENT
  Age: 53 Year
  Sex: Male

DRUGS (5)
  1. PREGABALIN [Concomitant]
     Dosage: 75 MG, PRN
  2. OLANZAPINE [Suspect]
     Indication: BORDERLINE PERSONALITY DISORDER
     Dosage: 300 MG, UNKNOWN
     Route: 030
  3. BENZODIAZEPINE DERIVATIVES [Concomitant]
     Dosage: UNK UNK, PRN
     Route: 065
  4. PIPERACILLIN AND TAZOBACTAM [Concomitant]
     Indication: NECROTISING FASCIITIS
     Dosage: 4.5 MG, 3 TIMES A DAY
     Route: 065
  5. ZYPREXA [Suspect]
     Indication: BORDERLINE PERSONALITY DISORDER
     Dosage: 5 MG, QD
     Route: 048

REACTIONS (12)
  - ELECTROCARDIOGRAM T WAVE ABNORMAL [None]
  - DISORIENTATION [None]
  - PYREXIA [None]
  - SEDATION [None]
  - NECROTISING FASCIITIS [None]
  - BLOOD LACTATE DEHYDROGENASE INCREASED [None]
  - BLOOD CREATINE PHOSPHOKINASE INCREASED [None]
  - GAIT DISTURBANCE [None]
  - FIBRIN D DIMER INCREASED [None]
  - WHITE BLOOD CELL COUNT INCREASED [None]
  - SPEECH DISORDER [None]
  - CONFUSIONAL STATE [None]
